FAERS Safety Report 11587037 (Version 2)
Quarter: 2016Q3

REPORT INFORMATION
  Report Type: Spontaneous
  Country: US (occurrence: US)
  Receive Date: 20151001
  Receipt Date: 20160906
  Transmission Date: 20161109
  Serious: Yes (Hospitalization)
  Sender: FDA-Public Use
  Company Number: US-ASTRAZENECA-2015SE92628

PATIENT
  Age: 57 Year
  Sex: Male
  Weight: 81.6 kg

DRUGS (16)
  1. SYMBICORT [Suspect]
     Active Substance: BUDESONIDE\FORMOTEROL FUMARATE DIHYDRATE
     Indication: EMPHYSEMA
     Dosage: ONCE DAILY ONCE/SINGLE ADMINISTRATION
     Route: 055
  2. SYMBICORT [Suspect]
     Active Substance: BUDESONIDE\FORMOTEROL FUMARATE DIHYDRATE
     Indication: ASTHMA
     Dosage: 1 PUFF TWICE DAILY ONCE/SINGLE ADMINISTRATION
     Route: 055
  3. SUBOXONE [Concomitant]
     Active Substance: BUPRENORPHINE HYDROCHLORIDE\NALOXONE HYDROCHLORIDE
     Indication: PAIN
     Dosage: 2 STRIPS DAILY
     Route: 061
     Dates: start: 201405
  4. SYMBICORT [Suspect]
     Active Substance: BUDESONIDE\FORMOTEROL FUMARATE DIHYDRATE
     Indication: ASTHMA
     Dosage: 160/4.5 UG 2 PUFFS TWICE DAILY
     Route: 055
     Dates: start: 2008, end: 201509
  5. SYMBICORT [Suspect]
     Active Substance: BUDESONIDE\FORMOTEROL FUMARATE DIHYDRATE
     Indication: CHRONIC OBSTRUCTIVE PULMONARY DISEASE
     Dosage: 3 PUFFS AT ONCE ONCE/SINGLE ADMINISTRATION
     Route: 055
  6. SYMBICORT [Suspect]
     Active Substance: BUDESONIDE\FORMOTEROL FUMARATE DIHYDRATE
     Indication: CHRONIC OBSTRUCTIVE PULMONARY DISEASE
     Dosage: 1 PUFF TWICE DAILY ONCE/SINGLE ADMINISTRATION
     Route: 055
  7. ALPRAZOLAM ER [Concomitant]
     Active Substance: ALPRAZOLAM
     Indication: PANIC ATTACK
     Dates: start: 201405
  8. SYMBICORT [Suspect]
     Active Substance: BUDESONIDE\FORMOTEROL FUMARATE DIHYDRATE
     Indication: CHRONIC OBSTRUCTIVE PULMONARY DISEASE
     Dosage: 160/4.5 UG 2 PUFFS TWICE DAILY
     Route: 055
     Dates: start: 2008, end: 201509
  9. SYMBICORT [Suspect]
     Active Substance: BUDESONIDE\FORMOTEROL FUMARATE DIHYDRATE
     Indication: ASTHMA
     Dosage: 3 PUFFS AT ONCE ONCE/SINGLE ADMINISTRATION
     Route: 055
  10. SYMBICORT [Suspect]
     Active Substance: BUDESONIDE\FORMOTEROL FUMARATE DIHYDRATE
     Indication: EMPHYSEMA
     Dosage: 1 PUFF TWICE DAILY ONCE/SINGLE ADMINISTRATION
     Route: 055
  11. TIZANIDINE HCL [Concomitant]
     Active Substance: TIZANIDINE HYDROCHLORIDE
     Indication: MUSCLE SPASMS
     Route: 048
     Dates: start: 201405
  12. SYMBICORT [Suspect]
     Active Substance: BUDESONIDE\FORMOTEROL FUMARATE DIHYDRATE
     Indication: EMPHYSEMA
     Dosage: 160/4.5 UG 2 PUFFS TWICE DAILY
     Route: 055
     Dates: start: 2008, end: 201509
  13. SYMBICORT [Suspect]
     Active Substance: BUDESONIDE\FORMOTEROL FUMARATE DIHYDRATE
     Indication: CHRONIC OBSTRUCTIVE PULMONARY DISEASE
     Dosage: ONCE DAILY ONCE/SINGLE ADMINISTRATION
     Route: 055
  14. SYMBICORT [Suspect]
     Active Substance: BUDESONIDE\FORMOTEROL FUMARATE DIHYDRATE
     Indication: ASTHMA
     Dosage: ONCE DAILY ONCE/SINGLE ADMINISTRATION
     Route: 055
  15. SUBOXONE [Concomitant]
     Active Substance: BUPRENORPHINE HYDROCHLORIDE\NALOXONE HYDROCHLORIDE
     Indication: DRUG DEPENDENCE
     Dosage: 2 STRIPS DAILY
     Route: 061
     Dates: start: 201405
  16. SYMBICORT [Suspect]
     Active Substance: BUDESONIDE\FORMOTEROL FUMARATE DIHYDRATE
     Indication: EMPHYSEMA
     Dosage: 3 PUFFS AT ONCE ONCE/SINGLE ADMINISTRATION
     Route: 055

REACTIONS (9)
  - Memory impairment [Unknown]
  - Product quality issue [Unknown]
  - Intentional product misuse [Unknown]
  - Road traffic accident [Unknown]
  - Traumatic lung injury [Unknown]
  - Drug dose omission [Unknown]
  - Rib fracture [Unknown]
  - Pulmonary haemorrhage [Unknown]
  - Craniocerebral injury [Unknown]

NARRATIVE: CASE EVENT DATE: 2012
